FAERS Safety Report 12772366 (Version 2)
Quarter: 2016Q4

REPORT INFORMATION
  Report Type: Report from Study
  Country: None (occurrence: US)
  Receive Date: 20160922
  Receipt Date: 20161208
  Transmission Date: 20170207
  Serious: Yes (Hospitalization, Other)
  Sender: FDA-Public Use
  Company Number: US-ABBVIE-16K-163-1732938-00

PATIENT
  Age: 61 Year
  Sex: Male
  Weight: 68.1 kg

DRUGS (1)
  1. HUMIRA [Suspect]
     Active Substance: ADALIMUMAB
     Indication: CROHN^S DISEASE
     Route: 058
     Dates: start: 201312

REACTIONS (9)
  - Chronic kidney disease [Recovered/Resolved]
  - Blood magnesium decreased [Recovering/Resolving]
  - Hypotension [Recovered/Resolved]
  - Diarrhoea [Recovering/Resolving]
  - Renal disorder [Unknown]
  - Oral candidiasis [Recovered/Resolved]
  - Dizziness [Recovered/Resolved]
  - Dehydration [Recovered/Resolved]
  - Gastrointestinal stoma output increased [Recovered/Resolved]

NARRATIVE: CASE EVENT DATE: 201604
